FAERS Safety Report 5018279-4 (Version None)
Quarter: 2006Q2

REPORT INFORMATION
  Report Type: 
  Country: None (occurrence: None)
  Receive Date: 20060530
  Receipt Date: 20060516
  Transmission Date: 20061013
  Serious: Yes (Hospitalization)
  Sender: FDA-Public Use
  Company Number: 2006060535

PATIENT
  Age: 51 Year
  Sex: Female
  Weight: 65 kg

DRUGS (3)
  1. EPIRUBICIN [Suspect]
     Indication: BREAST CANCER
     Dosage: 50 MG, INTRAVENOUS
     Route: 042
  2. WARFARIN [Concomitant]
  3. LEVOTHYROXINE SODIUM [Concomitant]

REACTIONS (8)
  - ARTHRALGIA [None]
  - BLOOD CHOLESTEROL INCREASED [None]
  - INFUSION SITE ERYTHEMA [None]
  - INFUSION SITE PAIN [None]
  - NAUSEA [None]
  - OEDEMA PERIPHERAL [None]
  - PAIN IN EXTREMITY [None]
  - THROMBOSIS [None]
